FAERS Safety Report 7465851-8 (Version None)
Quarter: 2011Q1

REPORT INFORMATION
  Report Type: 
  Country: None (occurrence: None)
  Receive Date: 20110302
  Receipt Date: 20100907
  Transmission Date: 20110831
  Serious: Yes (Other)
  Sender: FDA-Public Use
  Company Number: 163-21880-10080274

PATIENT
  Age: 72 Year
  Sex: Male

DRUGS (3)
  1. REVLIMID [Suspect]
     Indication: MULTIPLE MYELOMA
     Dosage: 25 MG, DAILY ON DAYS 1-21, PO
     Route: 048
     Dates: start: 20100223
  2. PROCRIT [Concomitant]
  3. NEUPOGEN [Concomitant]

REACTIONS (3)
  - VITAMIN D DEFICIENCY [None]
  - PLATELET COUNT DECREASED [None]
  - NEUROPATHY PERIPHERAL [None]
